FAERS Safety Report 6582434-2 (Version None)
Quarter: 2010Q1

REPORT INFORMATION
  Report Type: 
  Country: None (occurrence: None)
  Receive Date: 20100216
  Receipt Date: 20100203
  Transmission Date: 20100710
  Serious: Yes (Hospitalization)
  Sender: FDA-Public Use
  Company Number: PHHY2010FR06883

PATIENT
  Sex: Male

DRUGS (6)
  1. VOLTAREN [Suspect]
     Indication: PAIN
     Dosage: UNK
     Route: 048
     Dates: start: 20100101, end: 20100110
  2. BI-PROFENID [Interacting]
     Indication: PAIN
     Dosage: UNK
     Dates: start: 20100101, end: 20100110
  3. KARDEGIC [Concomitant]
     Indication: MYOCARDIAL ISCHAEMIA
     Dosage: UNK
     Dates: end: 20060101
  4. OMEPRAZOLE [Concomitant]
     Indication: MYOCARDIAL ISCHAEMIA
     Dosage: 20 MG
     Dates: start: 20060101
  5. BISOPROLOL FUMARATE [Concomitant]
     Indication: MYOCARDIAL ISCHAEMIA
     Dosage: 10 MG
     Dates: start: 20060101
  6. ELISOR [Concomitant]
     Indication: MYOCARDIAL ISCHAEMIA
     Dosage: UNK
     Dates: start: 20060101

REACTIONS (13)
  - ALCOHOLISM [None]
  - ANAEMIA [None]
  - BLOOD PRESSURE DECREASED [None]
  - CARDIAC MURMUR FUNCTIONAL [None]
  - DRUG INTERACTION [None]
  - GASTRIC ULCER [None]
  - HAEMATEMESIS [None]
  - HAEMOGLOBIN DECREASED [None]
  - MELAENA [None]
  - OESOPHAGITIS [None]
  - PNEUMOTHORAX [None]
  - RIB FRACTURE [None]
  - SUBCUTANEOUS EMPHYSEMA [None]
